FAERS Safety Report 11248161 (Version 1)
Quarter: 2015Q2

REPORT INFORMATION
  Report Type: Report from Study
  Country: US (occurrence: None)
  Receive Date: 20150617
  Receipt Date: 20150617
  Transmission Date: 20150821
  Serious: No
  Sender: FDA-Public Use
  Company Number: 2014TASUS000560

PATIENT
  Age: 63 Year
  Sex: Male
  Weight: 81.6 kg

DRUGS (3)
  1. STOOL SOFTNER (DOCUSATE SODIUM) [Concomitant]
  2. HETLIOZ [Suspect]
     Active Substance: TASIMELTEON
     Indication: CIRCADIAN RHYTHM SLEEP DISORDER
     Route: 048
     Dates: start: 2014
  3. WARFARIN (WARFARIN SODIUM) [Concomitant]
     Active Substance: WARFARIN

REACTIONS (1)
  - Drug effect decreased [None]

NARRATIVE: CASE EVENT DATE: 2014
